FAERS Safety Report 5716913-4 (Version None)
Quarter: 2008Q2

REPORT INFORMATION
  Report Type: 
  Country: None (occurrence: None)
  Receive Date: 20080424
  Receipt Date: 20080422
  Transmission Date: 20081010
  Serious: Yes (Other)
  Sender: FDA-Public Use
  Company Number: GB-BOEHRINGER INGELHEIM GMBH, GERMANY-2008-DE-02412GD

PATIENT
  Sex: Male

DRUGS (3)
  1. MORPHINE [Suspect]
     Indication: MUSCULOSKELETAL PAIN
  2. NON-STEROIDAL ANTI-INFLAMMATORY DRUG [Concomitant]
  3. TRICYCLIC ANTIDEPRESSANTS [Concomitant]

REACTIONS (1)
  - SUICIDAL IDEATION [None]
